FAERS Safety Report 7679409-9 (Version None)
Quarter: 2011Q3

REPORT INFORMATION
  Report Type: 
  Country: None (occurrence: None)
  Receive Date: 20110812
  Receipt Date: 20110801
  Transmission Date: 20111222
  Serious: Yes (Hospitalization)
  Sender: FDA-Public Use
  Company Number: US-JNJFOC-20110107914

PATIENT
  Sex: Male
  Weight: 55.1 kg

DRUGS (9)
  1. REMICADE [Suspect]
     Indication: DRUG THERAPY
     Dosage: TOTAL 13 DOSES
     Route: 042
     Dates: start: 20100726
  2. REMICADE [Suspect]
     Route: 042
     Dates: start: 20081230
  3. REMICADE [Suspect]
     Route: 042
     Dates: start: 20100223
  4. REMICADE [Suspect]
     Route: 042
     Dates: start: 20100223
  5. REMICADE [Suspect]
     Route: 042
     Dates: start: 20100601
  6. REMICADE [Suspect]
     Indication: CROHN'S DISEASE
     Dosage: TOTAL 13 DOSES
     Route: 042
     Dates: start: 20100726
  7. REMICADE [Suspect]
     Route: 042
     Dates: start: 20081230
  8. REMICADE [Suspect]
     Route: 042
     Dates: start: 20100601
  9. METHOTREXATE [Concomitant]

REACTIONS (2)
  - CROHN'S DISEASE [None]
  - INFECTION [None]
